FAERS Safety Report 24285350 (Version 1)
Quarter: 2024Q3

REPORT INFORMATION
  Report Type: Spontaneous
  Country: US (occurrence: None)
  Receive Date: 20240902
  Receipt Date: 20240902
  Transmission Date: 20241016
  Serious: Yes (Hospitalization)
  Sender: Public
  Company Number: None

PATIENT
  Sex: Female

DRUGS (1)
  1. CINACALCET HYDROCHLORIDE [Suspect]
     Active Substance: CINACALCET HYDROCHLORIDE
     Indication: Hyperparathyroidism secondary
     Dosage: 60 MG DAILY BY MOUTH?
     Route: 048
     Dates: start: 202407

REACTIONS (4)
  - Dyspnoea [None]
  - Dizziness [None]
  - Asthenia [None]
  - Renal transplant [None]
